FAERS Safety Report 5659460-0 (Version None)
Quarter: 2008Q1

REPORT INFORMATION
  Report Type: 
  Country: None (occurrence: None)
  Receive Date: 20080311
  Receipt Date: 20080306
  Transmission Date: 20080703
  Serious: Yes (Death, Other)
  Sender: FDA-Public Use
  Company Number: PHEH2006US05879

PATIENT
  Sex: Male

DRUGS (1)
  1. ZOMETA [Suspect]
     Indication: MULTIPLE MYELOMA

REACTIONS (9)
  - ANXIETY [None]
  - DEATH [None]
  - DENTAL OPERATION [None]
  - DENTOFACIAL ANOMALY [None]
  - DYSPHAGIA [None]
  - EMOTIONAL DISTRESS [None]
  - INFECTION [None]
  - OSTEONECROSIS [None]
  - PAIN [None]
